FAERS Safety Report 7309166-7 (Version None)
Quarter: 2011Q1

REPORT INFORMATION
  Report Type: 
  Country: None (occurrence: None)
  Receive Date: 20110223
  Receipt Date: 20110211
  Transmission Date: 20110831
  Serious: Yes (Hospitalization, Other)
  Sender: FDA-Public Use
  Company Number: US-ELI_LILLY_AND_COMPANY-US201102004283

PATIENT
  Sex: Female

DRUGS (2)
  1. EFFIENT [Suspect]
     Indication: STENT PLACEMENT
     Dosage: LOADING DOSE
  2. EFFIENT [Suspect]
     Dosage: 10 MG, UNKNOWN

REACTIONS (2)
  - THROMBOSIS IN DEVICE [None]
  - MYOCARDIAL INFARCTION [None]
